FAERS Safety Report 14185981 (Version 6)
Quarter: 2018Q4

REPORT INFORMATION
  Report Type: Spontaneous
  Country: US (occurrence: US)
  Receive Date: 20171114
  Receipt Date: 20181213
  Transmission Date: 20190204
  Serious: Yes (Hospitalization, Other)
  Sender: FDA-Public Use
  Company Number: US-GLAXOSMITHKLINE-US2017173246

PATIENT
  Age: 78 Year
  Sex: Female

DRUGS (11)
  1. ADVAIR DISKUS [Suspect]
     Active Substance: FLUTICASONE PROPIONATE\SALMETEROL XINAFOATE
     Indication: CHRONIC OBSTRUCTIVE PULMONARY DISEASE
     Dosage: UNK
     Route: 055
     Dates: start: 2008
  2. METOPROLOL SUCCINATE. [Concomitant]
     Active Substance: METOPROLOL SUCCINATE
  3. WARFARIN [Concomitant]
     Active Substance: WARFARIN
  4. ADVAIR DISKUS [Suspect]
     Active Substance: FLUTICASONE PROPIONATE\SALMETEROL XINAFOATE
     Indication: LUNG DISORDER
     Dosage: 1 PUFF(S), BID
     Route: 055
     Dates: start: 2008
  5. ASPIRIN. [Concomitant]
     Active Substance: ASPIRIN
  6. SIMVASTATIN. [Concomitant]
     Active Substance: SIMVASTATIN
  7. ADVAIR DISKUS [Suspect]
     Active Substance: FLUTICASONE PROPIONATE\SALMETEROL XINAFOATE
     Indication: DYSPNOEA
  8. LISINOPRIL. [Concomitant]
     Active Substance: LISINOPRIL
  9. PROAIR HFA [Concomitant]
     Active Substance: ALBUTEROL SULFATE
  10. XANAX [Concomitant]
     Active Substance: ALPRAZOLAM
  11. TRAMADOL. [Concomitant]
     Active Substance: TRAMADOL

REACTIONS (19)
  - Intraocular pressure increased [Unknown]
  - Arthritis infective [Unknown]
  - Vision blurred [Unknown]
  - Muscle spasms [Unknown]
  - Knee operation [Recovering/Resolving]
  - Fall [Recovered/Resolved]
  - Knee arthroplasty [Recovering/Resolving]
  - Glaucoma [Unknown]
  - Contusion [Unknown]
  - Vascular rupture [Unknown]
  - Sepsis [Unknown]
  - Back pain [Unknown]
  - Lung disorder [Unknown]
  - Joint injury [Unknown]
  - Intentional product use issue [Unknown]
  - Tendon injury [Unknown]
  - Rehabilitation therapy [Unknown]
  - Blister infected [Recovered/Resolved]
  - Hypoaesthesia [Unknown]

NARRATIVE: CASE EVENT DATE: 2016
